FAERS Safety Report 6312107-2 (Version None)
Quarter: 2009Q3

REPORT INFORMATION
  Report Type: 
  Country: None (occurrence: None)
  Receive Date: 20090817
  Receipt Date: 20090806
  Transmission Date: 20100115
  Serious: Yes (Hospitalization)
  Sender: FDA-Public Use
  Company Number: DE-ASTRAZENECA-2009SE03798

PATIENT
  Age: 7 Year
  Sex: Male
  Weight: 22 kg

DRUGS (2)
  1. OMEPRAZOLE [Suspect]
     Indication: REFLUX OESOPHAGITIS
     Route: 048
     Dates: start: 20090501, end: 20090619
  2. OMEPRAZOLE [Suspect]
     Dates: start: 20090620, end: 20090626

REACTIONS (4)
  - FEAR [None]
  - HALLUCINATION [None]
  - PANIC DISORDER [None]
  - VISUAL IMPAIRMENT [None]
